FAERS Safety Report 11009039 (Version 1)
Quarter: 2015Q2

REPORT INFORMATION
  Report Type: Spontaneous
  Country: US (occurrence: None)
  Receive Date: 20150409
  Receipt Date: 20150409
  Transmission Date: 20150821
  Serious: Yes (Other)
  Sender: FDA-Public Use
  Company Number: None

PATIENT
  Age: 75 Year
  Sex: Female

DRUGS (1)
  1. AUGMENTIN [Suspect]
     Active Substance: AMOXICILLIN\CLAVULANATE POTASSIUM
     Indication: DIVERTICULITIS
     Dosage: 1 PILL, BID, ORAL
     Route: 048
     Dates: start: 20150301, end: 20150312

REACTIONS (1)
  - Jaundice cholestatic [None]

NARRATIVE: CASE EVENT DATE: 20150319
